FAERS Safety Report 20080161 (Version 1)
Quarter: 2021Q4

REPORT INFORMATION
  Report Type: Spontaneous
  Country: CN (occurrence: None)
  Receive Date: 20211117
  Receipt Date: 20211117
  Transmission Date: 20220303
  Serious: Yes (Hospitalization)
  Sender: FDA-Public Use
  Company Number: 2021A805964

PATIENT
  Sex: Female

DRUGS (2)
  1. NEXIUM [Suspect]
     Active Substance: ESOMEPRAZOLE MAGNESIUM
     Indication: Gastric ulcer
     Route: 042
  2. LOSEC [Suspect]
     Active Substance: OMEPRAZOLE
     Route: 042

REACTIONS (7)
  - Cerebral infarction [Unknown]
  - Encephalitis [Unknown]
  - Melaena [Unknown]
  - Haematochezia [Unknown]
  - Gastric haemorrhage [Unknown]
  - Chronic gastritis [Unknown]
  - Pain [Unknown]
